FAERS Safety Report 4713393-2 (Version None)
Quarter: 2005Q3

REPORT INFORMATION
  Report Type: 
  Country: None (occurrence: None)
  Receive Date: 20050711
  Receipt Date: 20050628
  Transmission Date: 20060218
  Serious: Yes (Disabling)
  Sender: FDA-Public Use
  Company Number: 214471

PATIENT
  Age: 53 Year
  Sex: Female

DRUGS (7)
  1. RITUXAN [Suspect]
     Indication: MANTLE CELL LYMPHOMA
     Dosage: 500 MG, INTRAVENOUS
     Route: 042
     Dates: start: 20050124
  2. CYCLOPHOSPHAMIDE [Concomitant]
  3. VINCRISTINE [Concomitant]
  4. EPIRUBICIN HYDROCHLORIDE [Concomitant]
  5. PREDNISONE [Concomitant]
  6. CILOSTAZOL [Concomitant]
  7. BETAMETHASONE SODIUM PHOSPHATE [Concomitant]

REACTIONS (6)
  - BLOOD GLUCOSE INCREASED [None]
  - DEEP VEIN THROMBOSIS [None]
  - HAEMOGLOBIN DECREASED [None]
  - PLATELET COUNT DECREASED [None]
  - SUBILEUS [None]
  - WHITE BLOOD CELL COUNT DECREASED [None]
